APPROVED DRUG PRODUCT: FLUPHENAZINE HYDROCHLORIDE
Active Ingredient: FLUPHENAZINE HYDROCHLORIDE
Strength: 1MG
Dosage Form/Route: TABLET;ORAL
Application: A218769 | Product #001 | TE Code: AB
Applicant: HETERO LABS LTD UNIT III
Approved: Nov 18, 2025 | RLD: No | RS: No | Type: RX